FAERS Safety Report 24916102 (Version 3)
Quarter: 2025Q1

REPORT INFORMATION
  Report Type: Report from Study
  Country: US (occurrence: US)
  Receive Date: 20250203
  Receipt Date: 20250309
  Transmission Date: 20250409
  Serious: No
  Sender: ABBVIE
  Company Number: US-ABBVIE-6107390

PATIENT
  Age: 69 Year
  Sex: Female

DRUGS (3)
  1. CREON [Suspect]
     Active Substance: PANCRELIPASE AMYLASE\PANCRELIPASE LIPASE\PANCRELIPASE PROTEASE
     Indication: Pancreatic failure
     Route: 048
     Dates: start: 20240701
  2. CREON [Suspect]
     Active Substance: PANCRELIPASE AMYLASE\PANCRELIPASE LIPASE\PANCRELIPASE PROTEASE
     Indication: Pancreatic failure
     Route: 048
  3. GABAPENTIN [Concomitant]
     Active Substance: GABAPENTIN
     Indication: Product used for unknown indication

REACTIONS (7)
  - Arthritis [Unknown]
  - Back injury [Recovered/Resolved]
  - Hip fracture [Unknown]
  - Spinal osteoarthritis [Unknown]
  - Intentional product misuse [Not Recovered/Not Resolved]
  - Back pain [Unknown]
  - Osteoporosis [Unknown]

NARRATIVE: CASE EVENT DATE: 20241201
